FAERS Safety Report 8343821-5 (Version None)
Quarter: 2012Q1

REPORT INFORMATION
  Report Type: 
  Country: None (occurrence: None)
  Receive Date: 20120330
  Receipt Date: 20120104
  Transmission Date: 20120608
  Serious: Yes (Other)
  Sender: FDA-Public Use
  Company Number: PHEH2012US000706

PATIENT
  Age: 85 Year
  Sex: Female
  Weight: 53.5 kg

DRUGS (5)
  1. EXELON [Suspect]
     Indication: DEMENTIA
     Dosage: 4.6 MG PER DAY, TRANSDERMAL
     Route: 062
     Dates: start: 20111213, end: 20111222
  2. ATENOLOL [Concomitant]
  3. HYDROCHLOROTHIAZIDE [Concomitant]
  4. NAMENDA [Concomitant]
  5. LIPITOR [Concomitant]

REACTIONS (2)
  - BLOOD SODIUM DECREASED [None]
  - ASTHENIA [None]
